FAERS Safety Report 4770699-9 (Version None)
Quarter: 2005Q3

REPORT INFORMATION
  Report Type: 
  Country: None (occurrence: None)
  Receive Date: 20050915
  Receipt Date: 20050907
  Transmission Date: 20060218
  Serious: Yes (Death, Hospitalization)
  Sender: FDA-Public Use
  Company Number: US-JNJFOC-20050902556

PATIENT
  Age: 52 Year
  Sex: Male

DRUGS (4)
  1. ACETAMINOPHEN [Suspect]
     Route: 048
  2. ACETAMINOPHEN [Suspect]
     Indication: SUICIDE ATTEMPT
     Route: 048
  3. DILTIAZEM [Suspect]
     Indication: SUICIDE ATTEMPT
     Route: 048
  4. ETHANOL [Concomitant]
     Indication: SUICIDE ATTEMPT
     Route: 048

REACTIONS (6)
  - BLOOD PRESSURE DECREASED [None]
  - CARDIO-RESPIRATORY ARREST [None]
  - COMPLETED SUICIDE [None]
  - GRAND MAL CONVULSION [None]
  - INTENTIONAL MISUSE [None]
  - OVERDOSE [None]
